FAERS Safety Report 8900579 (Version 2)
Quarter: 2013Q1

REPORT INFORMATION
  Report Type: Spontaneous
  Country: US (occurrence: US)
  Receive Date: 20121109
  Receipt Date: 20130111
  Transmission Date: 20140127
  Serious: Yes (Hospitalization)
  Sender: FDA-Public Use
  Company Number: US-ELI_LILLY_AND_COMPANY-US201106007093

PATIENT
  Age: 68 Year
  Sex: Female

DRUGS (16)
  1. FORTEO [Suspect]
     Indication: OSTEOPOROSIS
     Dosage: 20 UG, QD
     Dates: start: 20110526
  2. FORTEO [Suspect]
     Dosage: 20 UG, QD
  3. FORTEO [Suspect]
     Dosage: 20 UG, QD
     Dates: end: 20121024
  4. COREG [Concomitant]
  5. LISINOPRIL [Concomitant]
     Indication: BLOOD PRESSURE
  6. HYDROCODONE [Concomitant]
  7. RESTORIL [Concomitant]
     Indication: SLEEP DISORDER
  8. ELAVIL [Concomitant]
  9. CYMBALTA [Concomitant]
     Indication: PAIN
  10. VITAMIN D3 [Concomitant]
  11. CALCIUM [Concomitant]
  12. PROSOM [Concomitant]
  13. LORTAB [Concomitant]
  14. CHLORTHALIDONE [Concomitant]
  15. METOPROLOL TARTRATE [Concomitant]
  16. CLONIDINE HCL [Concomitant]

REACTIONS (20)
  - Colitis ischaemic [Recovering/Resolving]
  - Hypertension [Recovering/Resolving]
  - Haematochezia [Unknown]
  - Osteoarthritis [Unknown]
  - Dizziness postural [Unknown]
  - Dizziness [Recovered/Resolved]
  - Arthralgia [Unknown]
  - Memory impairment [Unknown]
  - Diverticulitis [Unknown]
  - Vomiting [Unknown]
  - Abdominal pain upper [Unknown]
  - Back pain [Unknown]
  - Drug dose omission [Unknown]
  - Fall [Unknown]
  - Arthralgia [Unknown]
  - Back pain [Unknown]
  - Musculoskeletal stiffness [Unknown]
  - Depression [Unknown]
  - Skin discolouration [Unknown]
  - Fatigue [Unknown]
